FAERS Safety Report 7410030-3 (Version None)
Quarter: 2011Q2

REPORT INFORMATION
  Report Type: 
  Country: None (occurrence: None)
  Receive Date: 20110412
  Receipt Date: 20110331
  Transmission Date: 20111010
  Serious: Yes (Other)
  Sender: FDA-Public Use
  Company Number: PHHY2011KR27131

PATIENT
  Sex: Male

DRUGS (8)
  1. GLEEVEC [Suspect]
     Dosage: 600 MG, QD
     Route: 048
     Dates: start: 20090201
  2. TASIGNA [Suspect]
     Indication: CHRONIC MYELOID LEUKAEMIA
     Dosage: 800 MG, QD
     Route: 048
     Dates: start: 20080801
  3. GLEEVEC [Suspect]
     Indication: CHRONIC MYELOID LEUKAEMIA
     Dosage: 400 MG, QD
     Route: 048
     Dates: start: 20060908
  4. GLEEVEC [Suspect]
     Dosage: 600 MG, QD
     Route: 048
     Dates: start: 20080101
  5. GLEEVEC [Suspect]
     Dosage: 800 MG, QD
     Route: 048
     Dates: start: 20080701
  6. GLEEVEC [Suspect]
     Dosage: 500 MG, QD
     Route: 048
     Dates: start: 20100501
  7. GLEEVEC [Suspect]
     Dosage: 600 MG, QD
     Route: 048
     Dates: start: 20110331
  8. HYDREA [Concomitant]
     Dosage: UNK
     Dates: start: 20080701

REACTIONS (3)
  - DRUG TOLERANCE [None]
  - WHITE BLOOD CELL COUNT INCREASED [None]
  - GENERALISED OEDEMA [None]
